FAERS Safety Report 6740464-1 (Version None)
Quarter: 2010Q2

REPORT INFORMATION
  Report Type: 
  Country: None (occurrence: None)
  Receive Date: 20100525
  Receipt Date: 20100512
  Transmission Date: 20101027
  Serious: Yes (Hospitalization)
  Sender: FDA-Public Use
  Company Number: PHHY2010BR30892

PATIENT
  Sex: Male

DRUGS (2)
  1. DIOVAN HCT [Suspect]
     Indication: HYPERTENSION
     Dosage: 1 TABLET (160/12.5 MG) DAILY
     Route: 048
     Dates: start: 20100301
  2. CLOPIDOGREL [Concomitant]
     Dosage: 1 TABLET (75 MG) DAILY
     Dates: start: 20100511

REACTIONS (2)
  - ANGIOPLASTY [None]
  - CORONARY ARTERY OCCLUSION [None]
